FAERS Safety Report 25350266 (Version 1)
Quarter: 2025Q2

REPORT INFORMATION
  Report Type: Spontaneous
  Country: US (occurrence: US)
  Receive Date: 20250523
  Receipt Date: 20250523
  Transmission Date: 20250716
  Serious: Yes (Hospitalization)
  Sender: BIOGEN
  Company Number: US-BIOGEN-2023BI01239372

PATIENT
  Sex: Female

DRUGS (3)
  1. SKYCLARYS [Suspect]
     Active Substance: OMAVELOXOLONE
     Indication: Friedreich^s ataxia
     Route: 050
     Dates: start: 20230717
  2. SKYCLARYS [Suspect]
     Active Substance: OMAVELOXOLONE
     Route: 050
     Dates: start: 20230717, end: 20230719
  3. WEGOVY [Suspect]
     Active Substance: SEMAGLUTIDE
     Indication: Weight increased
     Route: 050

REACTIONS (7)
  - Urinary tract infection [Recovered/Resolved]
  - Dehydration [Unknown]
  - Pneumonia aspiration [Recovered/Resolved]
  - Tachycardia [Recovered/Resolved]
  - Vomiting [Recovered/Resolved]
  - Nausea [Recovered/Resolved]
  - Drug intolerance [Unknown]

NARRATIVE: CASE EVENT DATE: 20230101
